FAERS Safety Report 4365228-8 (Version None)
Quarter: 2004Q2

REPORT INFORMATION
  Report Type: 
  Country: None (occurrence: None)
  Receive Date: 20040525
  Receipt Date: 20040330
  Transmission Date: 20050107
  Serious: No
  Sender: FDA-Public Use
  Company Number: PHEH2004US03660

PATIENT
  Age: 39 Year
  Sex: Female

DRUGS (2)
  1. ZELNORM [Suspect]
     Indication: IRRITABLE BOWEL SYNDROME
     Dosage: SEE IMAGE
     Route: 048
     Dates: start: 20040301, end: 20040301
  2. ZELNORM [Suspect]
     Indication: IRRITABLE BOWEL SYNDROME
     Dosage: SEE IMAGE
     Route: 048
     Dates: start: 20040301

REACTIONS (2)
  - DIZZINESS [None]
  - HYPOAESTHESIA ORAL [None]
